FAERS Safety Report 8785139 (Version 1)
Quarter: 2012Q4

REPORT INFORMATION
  Report Type: Spontaneous
  Country: US (occurrence: None)
  Receive Date: 20120907
  Receipt Date: 20120907
  Transmission Date: 20130627
  Serious: Yes (Hospitalization)
  Sender: FDA-Public Use
  Company Number: None

PATIENT
  Age: 61 Year
  Sex: Male
  Weight: 79.6 kg

DRUGS (1)
  1. NAPROXEN [Suspect]
     Dates: start: 20120614

REACTIONS (1)
  - Abdominal wall haematoma [None]
